FAERS Safety Report 11026151 (Version 1)
Quarter: 2015Q2

REPORT INFORMATION
  Report Type: Spontaneous
  Country: US (occurrence: None)
  Receive Date: 20150413
  Receipt Date: 20150413
  Transmission Date: 20150821
  Serious: Yes (Disabling, Other)
  Sender: FDA-Public Use
  Company Number: None

PATIENT
  Age: 57 Year
  Sex: Female
  Weight: 90.72 kg

DRUGS (6)
  1. CITALAPRAM [Concomitant]
  2. WELLBUTRIN [Suspect]
     Active Substance: BUPROPION HYDROCHLORIDE
     Indication: MAJOR DEPRESSION
     Route: 048
     Dates: start: 20141001, end: 20150410
  3. WELLBUTRIN [Concomitant]
     Active Substance: BUPROPION HYDROCHLORIDE
  4. DIGESTIVE ENZYMES [Concomitant]
     Active Substance: UNSPECIFIED INGREDIENT
  5. MSM [Concomitant]
     Active Substance: DIMETHYL SULFONE
  6. TRAZODONE [Concomitant]
     Active Substance: TRAZODONE HYDROCHLORIDE

REACTIONS (12)
  - Headache [None]
  - Blood glucose increased [None]
  - Dry throat [None]
  - Arthritis [None]
  - Lethargy [None]
  - Dry mouth [None]
  - Depressed level of consciousness [None]
  - Muscle tightness [None]
  - Eye pain [None]
  - Vision blurred [None]
  - Pain in extremity [None]
  - Blepharospasm [None]

NARRATIVE: CASE EVENT DATE: 20150410
